FAERS Safety Report 5832726-7 (Version None)
Quarter: 2008Q3

REPORT INFORMATION
  Report Type: 
  Country: None (occurrence: None)
  Receive Date: 20080804
  Receipt Date: 20080723
  Transmission Date: 20090109
  Serious: Yes (Other)
  Sender: FDA-Public Use
  Company Number: BR-PFIZER INC-2008062546

PATIENT
  Sex: Female
  Weight: 65 kg

DRUGS (1)
  1. DEPO-PROVERA SUSPENSION/INJ [Suspect]

REACTIONS (4)
  - CHLOASMA [None]
  - CHOLECYSTECTOMY [None]
  - SWELLING [None]
  - WEIGHT DECREASED [None]
